FAERS Safety Report 5742092-3 (Version None)
Quarter: 2008Q2

REPORT INFORMATION
  Report Type: 
  Country: None (occurrence: None)
  Receive Date: 20080519
  Receipt Date: 20080507
  Transmission Date: 20081010
  Serious: Yes (Other)
  Sender: FDA-Public Use
  Company Number: JP-MERCK-0804USA02448

PATIENT
  Age: 41 Year
  Sex: Male

DRUGS (16)
  1. ZETIA [Suspect]
     Indication: HYPERLIPIDAEMIA
     Route: 048
     Dates: start: 20070918, end: 20080416
  2. ZETIA [Suspect]
     Indication: HYPERCHLORAEMIA
     Route: 048
     Dates: start: 20070918, end: 20080416
  3. PROMETHAZINE [Concomitant]
     Route: 065
     Dates: start: 19971118
  4. BIPERIDEN [Concomitant]
     Route: 065
     Dates: start: 20071118
  5. PIMOZIDE [Concomitant]
     Route: 065
     Dates: start: 19980430
  6. BEZAFIBRATE [Suspect]
     Route: 065
     Dates: start: 20000222, end: 20070917
  7. FAMOTIDINE [Concomitant]
     Route: 065
     Dates: start: 20000929
  8. SULPIRIDE [Concomitant]
     Route: 065
     Dates: start: 20020205
  9. ETIZOLAM [Concomitant]
     Route: 065
     Dates: start: 20020206
  10. PEROSPIRONE [Concomitant]
     Route: 065
     Dates: start: 20020205
  11. LORAZEPAM [Concomitant]
     Route: 065
     Dates: start: 20030528
  12. ZOLPIDEM TARTRATE [Concomitant]
     Route: 065
     Dates: start: 20030702
  13. COLESTILAN CHLORIDE [Suspect]
     Route: 065
     Dates: start: 20040825, end: 20070917
  14. METFORMIN [Concomitant]
     Route: 065
     Dates: start: 20040921
  15. PIOGLITAZONE HYDROCHLORIDE [Concomitant]
     Route: 065
     Dates: start: 20050406
  16. RISPERIDONE [Concomitant]
     Route: 065
     Dates: start: 20060920

REACTIONS (1)
  - DIABETES MELLITUS [None]
